FAERS Safety Report 21200369 (Version 1)
Quarter: 2022Q3

REPORT INFORMATION
  Report Type: Spontaneous
  Country: US (occurrence: None)
  Receive Date: 20220810
  Receipt Date: 20220810
  Transmission Date: 20221027
  Serious: Yes (Hospitalization)
  Sender: FDA-Public Use
  Company Number: None

PATIENT
  Sex: Female

DRUGS (1)
  1. FORTEO [Suspect]
     Active Substance: TERIPARATIDE
     Indication: Osteoporosis
     Dosage: 20MCG DAILY SUBCUTANEOUSLY?
     Route: 058
     Dates: start: 202207

REACTIONS (4)
  - Drooling [None]
  - Condition aggravated [None]
  - Lower limb fracture [None]
  - Therapy interrupted [None]
